FAERS Safety Report 5738144-4 (Version None)
Quarter: 2008Q2

REPORT INFORMATION
  Report Type: 
  Country: None (occurrence: None)
  Receive Date: 20080514
  Receipt Date: 20080506
  Transmission Date: 20081010
  Serious: Yes (Other)
  Sender: FDA-Public Use
  Company Number: IN-PFIZER INC-2008039318

PATIENT
  Age: 9 Year
  Sex: Male

DRUGS (2)
  1. SERTRALINE [Suspect]
     Indication: MAJOR DEPRESSION
  2. LORAZEPAM [Concomitant]

REACTIONS (1)
  - BIPOLAR DISORDER [None]
